FAERS Safety Report 13928990 (Version 2)
Quarter: 2017Q4

REPORT INFORMATION
  Report Type: Report from Study
  Country: None (occurrence: US)
  Receive Date: 20170901
  Receipt Date: 20171026
  Transmission Date: 20180320
  Serious: Yes (Hospitalization, Other)
  Sender: FDA-Public Use
  Company Number: US-ABBVIE-17K-163-1867237-00

PATIENT
  Age: 63 Year
  Sex: Female

DRUGS (3)
  1. HUMIRA [Suspect]
     Active Substance: ADALIMUMAB
     Indication: COLITIS ULCERATIVE
     Dosage: DAY 1
     Route: 058
     Dates: start: 20161223, end: 20161223
  2. HUMIRA [Suspect]
     Active Substance: ADALIMUMAB
     Dosage: FROM DAY 29
     Route: 058
     Dates: start: 20170120
  3. HUMIRA [Suspect]
     Active Substance: ADALIMUMAB
     Dosage: DAY 15
     Route: 058
     Dates: start: 20170106, end: 20170106

REACTIONS (4)
  - Influenza [Recovered/Resolved]
  - Diarrhoea [Recovering/Resolving]
  - Dermatitis psoriasiform [Unknown]
  - Immunodeficiency [Recovered/Resolved]

NARRATIVE: CASE EVENT DATE: 201702
